FAERS Safety Report 21960806 (Version 1)
Quarter: 2023Q1

REPORT INFORMATION
  Report Type: Other
  Country: US (occurrence: None)
  Receive Date: 20230207
  Receipt Date: 20230207
  Transmission Date: 20230418
  Serious: Yes (Death)
  Sender: FDA-Public Use
  Company Number: US-ROCHE-3178398

PATIENT
  Age: 71 Year
  Sex: Female

DRUGS (16)
  1. AVASTIN [Suspect]
     Active Substance: BEVACIZUMAB
     Indication: Ovarian cancer
     Dosage: DATE OF SERVICE: 26/NOV/2021 (VIAL, 600MG), INFUSE 600MG INTRAVENOUSLY EVERY 2 WEEK
     Route: 042
     Dates: start: 202111
  2. AVASTIN [Suspect]
     Active Substance: BEVACIZUMAB
     Indication: Gastrointestinal carcinoma
     Dosage: INFUSE 600MG INTRAVENOUSLY EVERY 2 WEEKS
     Route: 042
  3. AVASTIN [Suspect]
     Active Substance: BEVACIZUMAB
     Indication: Ovarian germ cell cancer
  4. AVASTIN [Suspect]
     Active Substance: BEVACIZUMAB
     Indication: Neoplasm malignant
  5. TYLENOL [Concomitant]
     Active Substance: ACETAMINOPHEN
  6. ASPIRIN [Concomitant]
     Active Substance: ASPIRIN
  7. LIPITOR [Concomitant]
     Active Substance: ATORVASTATIN CALCIUM
  8. COREG [Concomitant]
     Active Substance: CARVEDILOL
  9. PLAVIX [Concomitant]
     Active Substance: CLOPIDOGREL BISULFATE
  10. IMDUR [Concomitant]
     Active Substance: ISOSORBIDE MONONITRATE
  11. SYNTHROID [Concomitant]
     Active Substance: LEVOTHYROXINE SODIUM
  12. GLUCOPHAGE [Concomitant]
     Active Substance: METFORMIN HYDROCHLORIDE
  13. ZOFRAN [Concomitant]
     Active Substance: ONDANSETRON HYDROCHLORIDE
  14. ROXICODONE [Concomitant]
     Active Substance: OXYCODONE HYDROCHLORIDE
  15. ENTRESTO [Concomitant]
     Active Substance: SACUBITRIL\VALSARTAN
  16. SENOKOT [Concomitant]
     Active Substance: SENNOSIDES

REACTIONS (1)
  - Death [Fatal]

NARRATIVE: CASE EVENT DATE: 20220904
